FAERS Safety Report 7320004-9 (Version None)
Quarter: 2011Q1

REPORT INFORMATION
  Report Type: 
  Country: None (occurrence: None)
  Receive Date: 20110228
  Receipt Date: 20110221
  Transmission Date: 20110831
  Serious: Yes (Hospitalization, Other)
  Sender: FDA-Public Use
  Company Number: US-AMGEN-USASP2011010111

PATIENT
  Age: 61 Year
  Sex: Female

DRUGS (2)
  1. ENBREL [Suspect]
     Indication: RHEUMATOID ARTHRITIS
     Dates: start: 20080514, end: 20101215
  2. ENBREL [Suspect]
     Indication: OFF LABEL USE

REACTIONS (7)
  - LOSS OF CONSCIOUSNESS [None]
  - PLATELET COUNT ABNORMAL [None]
  - GASTRIC ULCER [None]
  - CONVULSION [None]
  - FALL [None]
  - TRANSIENT ISCHAEMIC ATTACK [None]
  - RHEUMATOID ARTHRITIS [None]
